FAERS Safety Report 6232017-9 (Version None)
Quarter: 2009Q2

REPORT INFORMATION
  Report Type: 
  Country: None (occurrence: None)
  Receive Date: 20090612
  Receipt Date: 20090610
  Transmission Date: 20091009
  Serious: Yes (Other)
  Sender: FDA-Public Use
  Company Number: DE-WYE-G02164008

PATIENT
  Age: 31 Year
  Sex: Female

DRUGS (6)
  1. RAPAMUNE [Suspect]
     Indication: PROPHYLAXIS AGAINST TRANSPLANT REJECTION
     Dosage: 2 MG 1X PER 1 DAY ORAL
     Route: 048
     Dates: start: 20050401, end: 20080916
  2. PROGRAF [Concomitant]
  3. METHYLPREDNISOLONE [Concomitant]
  4. CALCITRIOL [Concomitant]
  5. VIGANTOLETTEN (COLECALCIFEROL) [Concomitant]
  6. FOLIC ACID [Concomitant]

REACTIONS (7)
  - CAESAREAN SECTION [None]
  - DRUG EXPOSURE DURING PREGNANCY [None]
  - PLACENTAL DISORDER [None]
  - PLACENTAL HYPERTROPHY [None]
  - PREGNANCY [None]
  - PREMATURE LABOUR [None]
  - THROMBOSIS [None]
